FAERS Safety Report 10169151 (Version 1)
Quarter: 2014Q2

REPORT INFORMATION
  Report Type: Spontaneous
  Country: US (occurrence: US)
  Receive Date: 20140513
  Receipt Date: 20140513
  Transmission Date: 20141212
  Serious: Yes (Other)
  Sender: FDA-Public Use
  Company Number: US-TEVA-481140USA

PATIENT
  Sex: Male

DRUGS (6)
  1. AMPHETAMINE W/DEXTROAMPHETAMINE [Suspect]
     Route: 065
  2. CLONIDINE [Suspect]
  3. DEPAKOTE [Suspect]
  4. DEXEDRINE [Suspect]
  5. FLURAZEPAM [Suspect]
  6. RISPERDAL [Suspect]

REACTIONS (1)
  - Hydrocephalus [Unknown]
